FAERS Safety Report 11474725 (Version 1)
Quarter: 2015Q3

REPORT INFORMATION
  Report Type: Spontaneous
  Country: US (occurrence: None)
  Receive Date: 20150902
  Receipt Date: 20150902
  Transmission Date: 20151125
  Serious: Yes (Hospitalization)
  Sender: FDA-Public Use
  Company Number: A-US2014-107412

PATIENT
  Age: 58 Year
  Sex: Female

DRUGS (3)
  1. TYVASO [Suspect]
     Active Substance: TREPROSTINIL
     Indication: PULMONARY ARTERIAL HYPERTENSION
     Dosage: 18-54 MCG, QID, RESPIRATORY
     Route: 055
     Dates: start: 20140929
  2. VELETRI [Suspect]
     Active Substance: EPOPROSTENOL
     Indication: PULMONARY ARTERIAL HYPERTENSION
     Dosage: 27.5 NG/KG, PER MIN, INTRAVENOUS
     Route: 041
     Dates: start: 20130606
  3. REVATIO [Suspect]
     Active Substance: SILDENAFIL CITRATE
     Indication: PRODUCT USED FOR UNKNOWN INDICATION

REACTIONS (5)
  - Device related infection [None]
  - Catheter site infection [None]
  - Catheter site nodule [None]
  - Somnolence [None]
  - Catheter site erythema [None]

NARRATIVE: CASE EVENT DATE: 20141024
